FAERS Safety Report 25122286 (Version 1)
Quarter: 2025Q1

REPORT INFORMATION
  Report Type: Spontaneous
  Country: CN (occurrence: CN)
  Receive Date: 20250326
  Receipt Date: 20250326
  Transmission Date: 20250409
  Serious: Yes (Hospitalization, Other)
  Sender: NOVARTIS
  Company Number: CN-002147023-NVSC2025CN047928

PATIENT
  Age: 31 Year
  Sex: Male

DRUGS (2)
  1. COSENTYX [Suspect]
     Active Substance: SECUKINUMAB
     Indication: Ankylosing spondylitis
     Dosage: 150 MG, 28D
     Route: 058
     Dates: start: 20220401, end: 20250216
  2. ASPIRIN [Suspect]
     Active Substance: ASPIRIN
     Indication: Thrombosis
     Dosage: 100 MG, QD (ENTERIC COATED TABLETS)
     Route: 048
     Dates: start: 20220101, end: 20250310

REACTIONS (15)
  - Crohn^s disease [Recovering/Resolving]
  - Retroperitoneal haemorrhage [Recovering/Resolving]
  - Haematocoele [Unknown]
  - Abdominal pain [Recovering/Resolving]
  - Appendicitis [Unknown]
  - Duodenitis [Unknown]
  - White blood cell count increased [Unknown]
  - Neutrophil percentage increased [Unknown]
  - Blood fibrinogen increased [Unknown]
  - Blood sodium decreased [Unknown]
  - Blood chloride increased [Unknown]
  - Interleukin level increased [Unknown]
  - Fibrin D dimer increased [Unknown]
  - Haemoglobin decreased [Unknown]
  - Neutrophil count increased [Unknown]

NARRATIVE: CASE EVENT DATE: 20250312
